FAERS Safety Report 5241797-0 (Version None)
Quarter: 2007Q1

REPORT INFORMATION
  Report Type: 
  Country: None (occurrence: None)
  Receive Date: 20070220
  Receipt Date: 20070215
  Transmission Date: 20070707
  Serious: Yes (Death)
  Sender: FDA-Public Use
  Company Number: LB-SANOFI-SYNTHELABO-F01200700105

PATIENT
  Age: 63 Year
  Sex: Male
  Weight: 81 kg

DRUGS (9)
  1. TRITACE [Concomitant]
     Indication: HYPERTENSION
     Route: 048
  2. AMLOR [Concomitant]
     Indication: CARDIOVASCULAR DISORDER
     Dosage: 5 MG
     Route: 048
  3. LOVENOX [Concomitant]
     Indication: PROPHYLAXIS
     Route: 042
  4. LIPITOR [Concomitant]
     Indication: DYSLIPIDAEMIA
     Dosage: 20 MG
     Route: 048
  5. ASPIRIN [Concomitant]
     Indication: PROPHYLAXIS
     Dosage: 100 MG
     Route: 048
  6. DILATREND [Concomitant]
     Indication: HYPERTENSION
     Route: 048
  7. PRAXILENE [Concomitant]
     Indication: MYOCARDIAL ISCHAEMIA
     Dosage: 200 MG
     Route: 048
  8. CLOPIDOGREL [Suspect]
     Dosage: 75 MG
     Route: 048
  9. MIXTARD HUMAN 70/30 [Concomitant]
     Indication: DIABETES MELLITUS NON-INSULIN-DEPENDENT

REACTIONS (1)
  - CARDIAC ARREST [None]
